FAERS Safety Report 16885499 (Version 3)
Quarter: 2019Q4

REPORT INFORMATION
  Report Type: Spontaneous
  Country: PL (occurrence: PL)
  Receive Date: 20191004
  Receipt Date: 20191014
  Transmission Date: 20200122
  Serious: Yes (Other)
  Sender: FDA-Public Use
  Company Number: PL-AMGEN-POLSP2019158037

PATIENT
  Age: 51 Year
  Sex: Female

DRUGS (10)
  1. LEUCOVORIN [FOLINIC ACID] [Concomitant]
     Active Substance: LEUCOVORIN
     Indication: COLORECTAL CANCER METASTATIC
     Dosage: UNK UNK, Q2WK, (20 PERCENT REDUCED)
     Dates: start: 20181026
  2. 5-FU [FLUOROURACIL] [Concomitant]
     Active Substance: FLUOROURACIL
     Indication: COLORECTAL CANCER METASTATIC
     Dosage: UNK UNK, Q2WK, (20 PERCENT REDUCED)
     Dates: start: 20181026
  3. VECTIBIX [Suspect]
     Active Substance: PANITUMUMAB
     Dosage: UNK, Q2WK (REDUCED DOSE)
     Route: 042
     Dates: start: 20190208
  4. VECTIBIX [Suspect]
     Active Substance: PANITUMUMAB
     Dosage: UNK, Q2WK
     Route: 042
     Dates: start: 20190215
  5. VECTIBIX [Suspect]
     Active Substance: PANITUMUMAB
     Dosage: UNK UNK, Q2WK, (20 PERCENT REDUCED)
     Route: 042
     Dates: start: 2019
  6. VECTIBIX [Suspect]
     Active Substance: PANITUMUMAB
     Dosage: 6 MILLIGRAM/KILOGRAM,  (FULL DOSES)
     Route: 042
     Dates: start: 2019
  7. OXALIPLATIN. [Concomitant]
     Active Substance: OXALIPLATIN
     Indication: COLORECTAL CANCER METASTATIC
     Dosage: UNK UNK, Q2WK, (20 PERCENT REDUCED)
     Dates: start: 20181026
  8. VECTIBIX [Suspect]
     Active Substance: PANITUMUMAB
     Indication: COLORECTAL CANCER METASTATIC
     Dosage: 6 MILLIGRAM/KILOGRAM, Q2WK
     Route: 042
     Dates: start: 20181026
  9. VECTIBIX [Suspect]
     Active Substance: PANITUMUMAB
     Dosage: 6 MILLIGRAM/KILOGRAM, Q2WK (FULL DOSE)
     Route: 042
     Dates: start: 2018
  10. VECTIBIX [Suspect]
     Active Substance: PANITUMUMAB
     Dosage: UNK, Q2WK (REDUCED DOSE)
     Route: 042
     Dates: start: 2019

REACTIONS (5)
  - Skin toxicity [Recovered/Resolved]
  - Pulmonary embolism [Recovered/Resolved]
  - Ventricular dysfunction [Unknown]
  - Neutropenia [Unknown]
  - Performance status decreased [Recovering/Resolving]

NARRATIVE: CASE EVENT DATE: 2018
